FAERS Safety Report 8997459 (Version 1)
Quarter: 2013Q1

REPORT INFORMATION
  Report Type: Spontaneous
  Country: CA (occurrence: CA)
  Receive Date: 20130104
  Receipt Date: 20130104
  Transmission Date: 20140127
  Serious: Yes (Other)
  Sender: FDA-Public Use
  Company Number: CHPA2012CA026009

PATIENT
  Age: 14 Year
  Sex: Male

DRUGS (1)
  1. BUCKLEY^S COMPLETE LIQUID GELS NIGHT [Suspect]
     Indication: NASAL CONGESTION
     Dosage: 2 DF, UNK
     Route: 048
     Dates: start: 20121225, end: 20121225

REACTIONS (5)
  - Syncope [Recovered/Resolved]
  - Convulsion [Recovered/Resolved]
  - Musculoskeletal stiffness [Recovered/Resolved]
  - Cold sweat [Recovered/Resolved]
  - Disorientation [Unknown]
